FAERS Safety Report 13998623 (Version 2)
Quarter: 2018Q1

REPORT INFORMATION
  Report Type: Spontaneous
  Country: FI (occurrence: FI)
  Receive Date: 20170921
  Receipt Date: 20180228
  Transmission Date: 20180508
  Serious: Yes (Death, Life-Threatening, Hospitalization, Other)
  Sender: FDA-Public Use
  Company Number: FI-BRISTOL-MYERS SQUIBB COMPANY-BMS-2017-078350

PATIENT
  Age: 76 Year
  Sex: Male

DRUGS (6)
  1. OPDIVO [Suspect]
     Active Substance: NIVOLUMAB
     Indication: NON-SMALL CELL LUNG CANCER METASTATIC
     Dosage: 3 MG/KG, Q2WK
     Route: 042
     Dates: start: 20170808, end: 20170822
  2. MIRABEGRON [Concomitant]
     Active Substance: MIRABEGRON
     Indication: HYPERTONIC BLADDER
     Route: 065
  3. DUODART [Concomitant]
     Active Substance: DUTASTERIDE\TAMSULOSIN
     Indication: BENIGN PROSTATIC HYPERPLASIA
     Dosage: 1 DF, UNK
     Route: 048
  4. PRIMASPAN [Concomitant]
     Active Substance: ASPIRIN
     Indication: CEREBRAL CIRCULATORY FAILURE
     Route: 065
  5. MIRABEGRON [Concomitant]
     Active Substance: MIRABEGRON
     Indication: GALLBLADDER DISORDER
     Dosage: 50 MG, QD
     Route: 048
  6. PRIMASPAN [Concomitant]
     Active Substance: ASPIRIN
     Indication: CEREBROVASCULAR DISORDER
     Dosage: 100 MG, QD
     Route: 048

REACTIONS (10)
  - Diplopia [Fatal]
  - Ataxia [Fatal]
  - Asthenia [Fatal]
  - Pneumonia [Fatal]
  - Brain stem syndrome [Fatal]
  - Dyspnoea [Fatal]
  - Acute myocardial infarction [Fatal]
  - Troponin T increased [Fatal]
  - Rhabdomyolysis [Fatal]
  - Dysphagia [Fatal]

NARRATIVE: CASE EVENT DATE: 20170829
